FAERS Safety Report 7903667-6 (Version None)
Quarter: 2011Q4

REPORT INFORMATION
  Report Type: 
  Country: None (occurrence: None)
  Receive Date: 20111109
  Receipt Date: 20111107
  Transmission Date: 20120403
  Serious: Yes (Hospitalization, Other)
  Sender: FDA-Public Use
  Company Number: DE-SANOFI-AVENTIS-2011SA070670

PATIENT
  Age: 75 Year
  Sex: Female
  Weight: 85 kg

DRUGS (1)
  1. CLOPIDOGREL BISULFATE [Suspect]
     Route: 048
     Dates: start: 20050301

REACTIONS (1)
  - TRANSIENT ISCHAEMIC ATTACK [None]
